FAERS Safety Report 17497495 (Version 1)
Quarter: 2020Q1

REPORT INFORMATION
  Report Type: Spontaneous
  Country: DE (occurrence: DE)
  Receive Date: 20200304
  Receipt Date: 20200304
  Transmission Date: 20200409
  Serious: Yes (Hospitalization)
  Sender: FDA-Public Use
  Company Number: DE-MYLANLABS-2020M1022562

PATIENT
  Age: 19 Month
  Sex: Female
  Weight: 8 kg

DRUGS (2)
  1. MONTELUKAST [Suspect]
     Active Substance: MONTELUKAST SODIUM
     Indication: RESPIRATORY TRACT INFECTION
     Dosage: DAILY DOSE: 4 ML MILLILITRE(S) EVERY DAYS
     Route: 048
     Dates: start: 201809
  2. PULMICORT TURBUHALER [Suspect]
     Active Substance: BUDESONIDE
     Indication: RESPIRATORY TRACT INFECTION
     Dosage: DAILY DOSE: 4 ML MILLILITRE(S) EVERY DAYS 2 SEPARATED DOSES
     Route: 055
     Dates: start: 201809

REACTIONS (2)
  - Respiratory tract infection [Unknown]
  - Seizure [Unknown]

NARRATIVE: CASE EVENT DATE: 20181210
